FAERS Safety Report 20612538 (Version 1)
Quarter: 2022Q1

REPORT INFORMATION
  Report Type: Spontaneous
  Country: US (occurrence: US)
  Receive Date: 20220318
  Receipt Date: 20220318
  Transmission Date: 20220423
  Serious: No
  Sender: FDA-Public Use
  Company Number: US-TEVA-2022-US-2010476

PATIENT
  Sex: Male

DRUGS (1)
  1. COPAXONE [Suspect]
     Active Substance: GLATIRAMER ACETATE
     Dosage: FORM STRENGTH UNKNOWN
     Route: 065

REACTIONS (6)
  - Illness [Unknown]
  - Weight decreased [Unknown]
  - Alopecia [Unknown]
  - Tremor [Unknown]
  - Gait inability [Unknown]
  - General physical health deterioration [Unknown]
